FAERS Safety Report 6293617-3 (Version None)
Quarter: 2009Q3

REPORT INFORMATION
  Report Type: 
  Country: None (occurrence: None)
  Receive Date: 20090803
  Receipt Date: 20090722
  Transmission Date: 20100115
  Serious: Yes (Other)
  Sender: FDA-Public Use
  Company Number: TN-RANBAXY-2009RR-25849

PATIENT
  Age: 24 Year
  Sex: Male

DRUGS (2)
  1. DOXYCYCLINE HCL [Suspect]
     Indication: COUGH
     Dosage: 100 MG, QD
     Dates: start: 20051002
  2. DOXYCYCLINE HCL [Suspect]
     Indication: SELF-MEDICATION

REACTIONS (1)
  - BENIGN INTRACRANIAL HYPERTENSION [None]
